FAERS Safety Report 6970433-8 (Version None)
Quarter: 2010Q3

REPORT INFORMATION
  Report Type: 
  Country: None (occurrence: None)
  Receive Date: 20100908
  Receipt Date: 20100830
  Transmission Date: 20110219
  Serious: Yes (Hospitalization)
  Sender: FDA-Public Use
  Company Number: US-SANOFI-AVENTIS-2010SA052582

PATIENT
  Age: 64 Year
  Sex: Male

DRUGS (5)
  1. UROXATRAL [Suspect]
     Indication: URINARY TRACT DISORDER
     Route: 048
     Dates: start: 20100803, end: 20100806
  2. INDERAL LA [Concomitant]
     Dates: start: 19900101, end: 20100801
  3. METFORMIN [Concomitant]
  4. SIMVASTATIN [Concomitant]
  5. ASPIRIN [Concomitant]

REACTIONS (2)
  - EXTRASYSTOLES [None]
  - VENTRICULAR EXTRASYSTOLES [None]
